FAERS Safety Report 20040366 (Version 1)
Quarter: 2021Q4

REPORT INFORMATION
  Report Type: Spontaneous
  Country: US (occurrence: None)
  Receive Date: 20211107
  Receipt Date: 20211107
  Transmission Date: 20220303
  Serious: Yes (Hospitalization)
  Sender: FDA-Public Use
  Company Number: None

PATIENT
  Age: 29 Year
  Sex: Female
  Weight: 79.1 kg

DRUGS (1)
  1. REGEN-COV [Suspect]
     Active Substance: CASIRIVIMAB\IMDEVIMAB
     Indication: SARS-CoV-2 test positive
     Dosage: OTHER FREQUENCY : ONCE;?
     Route: 041
     Dates: start: 20211105, end: 20211105

REACTIONS (10)
  - Infusion related reaction [None]
  - Sinus congestion [None]
  - Throat irritation [None]
  - Pharyngeal swelling [None]
  - Tachycardia [None]
  - Hypoxia [None]
  - Headache [None]
  - Cough [None]
  - Oxygen consumption decreased [None]
  - COVID-19 [None]

NARRATIVE: CASE EVENT DATE: 20211105
